FAERS Safety Report 10006601 (Version 2)
Quarter: 2014Q1

REPORT INFORMATION
  Report Type: Report from Study
  Country: CA (occurrence: CA)
  Receive Date: 20140313
  Receipt Date: 20140313
  Transmission Date: 20141002
  Serious: Yes (Other)
  Sender: FDA-Public Use
  Company Number: CA-JNJFOC-20120705080

PATIENT
  Age: 74 Year
  Sex: Female
  Weight: 60.8 kg

DRUGS (21)
  1. REMICADE [Suspect]
     Indication: RHEUMATOID ARTHRITIS
     Dosage: PATIENT^S 42ND INFUSION
     Route: 042
     Dates: start: 20140212
  2. REMICADE [Suspect]
     Indication: RHEUMATOID ARTHRITIS
     Dosage: PATIENT^S 42ND INFUSION
     Route: 042
     Dates: start: 20120710
  3. REMICADE [Suspect]
     Indication: RHEUMATOID ARTHRITIS
     Route: 042
     Dates: start: 20060516
  4. METHOTREXATE [Concomitant]
     Indication: RHEUMATOID ARTHRITIS
     Route: 048
  5. PREDNISONE [Concomitant]
     Indication: RHEUMATOID ARTHRITIS
     Dosage: POSSIBLE 5 OR 10
     Route: 048
  6. IMITREX [Concomitant]
     Indication: MIGRAINE
     Route: 065
  7. COVERSYL [Concomitant]
     Route: 065
  8. PARIET [Concomitant]
     Route: 065
  9. SERTRALINE [Concomitant]
     Route: 065
  10. ZOPICLONE [Concomitant]
     Indication: SLEEP DISORDER
     Route: 065
  11. NEXIUM [Concomitant]
     Indication: GASTROOESOPHAGEAL REFLUX DISEASE
     Route: 065
  12. COVERSYL [Concomitant]
     Indication: BLOOD PRESSURE
     Route: 065
  13. ACETYLSALICYLIC ACID [Concomitant]
     Route: 065
  14. POTASSIUM [Concomitant]
     Dosage: 10 TBCR
     Route: 065
  15. MULTIVITAMINS [Concomitant]
     Dosage: 10 TBCR
     Route: 065
  16. ASTAXANTHIN [Concomitant]
     Indication: ANTIOXIDANT THERAPY
     Dosage: 10 TBCR
     Route: 065
  17. VITAMIN D [Concomitant]
     Dosage: 10 TBCR
     Route: 065
  18. KRILL OIL [Concomitant]
     Dosage: 10 TBCR
     Route: 065
  19. ATORVASTATIN CALCIUM [Concomitant]
     Dosage: 10 TBCR
     Route: 065
  20. LAMIVUDINE [Concomitant]
     Indication: ANTIVIRAL PROPHYLAXIS
     Dosage: 10 TBCR
     Route: 065
  21. ZOLPIDEM TARTRATE [Concomitant]
     Dosage: 10 TBCR
     Route: 065

REACTIONS (9)
  - Syncope [Recovering/Resolving]
  - Fall [Recovering/Resolving]
  - Joint swelling [Recovering/Resolving]
  - Rheumatoid arthritis [Unknown]
  - Painful respiration [Recovering/Resolving]
  - Skeletal injury [Recovering/Resolving]
  - Pain [Recovering/Resolving]
  - Swelling [Recovering/Resolving]
  - Excoriation [Recovering/Resolving]
